FAERS Safety Report 20091539 (Version 2)
Quarter: 2024Q2

REPORT INFORMATION
  Report Type: Spontaneous
  Country: CA (occurrence: CA)
  Receive Date: 20211119
  Receipt Date: 20240418
  Transmission Date: 20240716
  Serious: Yes (Disabling, Other)
  Sender: FDA-Public Use
  Company Number: CA-TEVA-2021-CA-1978139

PATIENT
  Age: 11 Month
  Sex: Female

DRUGS (2)
  1. CARBOPLATIN [Suspect]
     Active Substance: CARBOPLATIN
     Indication: Glioblastoma
     Dosage: TIME INTERVAL: CYCLICAL: DOSAGE FORM: SOLUTION INTRAVENOUS, NJECTION BP
     Route: 065
  2. VINCRISTINE [Concomitant]
     Active Substance: VINCRISTINE
     Indication: Glioblastoma
     Dosage: TIME INTERVAL: CYCLICAL
     Route: 065

REACTIONS (2)
  - Deafness bilateral [Not Recovered/Not Resolved]
  - Off label use [Not Recovered/Not Resolved]
